FAERS Safety Report 7164630-9 (Version None)
Quarter: 2010Q4

REPORT INFORMATION
  Report Type: 
  Country: None (occurrence: None)
  Receive Date: 20101215
  Receipt Date: 20101209
  Transmission Date: 20110411
  Serious: Yes (Death, Other)
  Sender: FDA-Public Use
  Company Number: DK-SANOFI-AVENTIS-2010SA075428

PATIENT
  Sex: Male

DRUGS (1)
  1. DDAVP [Suspect]
     Dosage: 1 SPRAY
     Route: 045
     Dates: start: 20070101, end: 20100101

REACTIONS (2)
  - CEREBRAL HAEMORRHAGE [None]
  - CONVULSION [None]
